FAERS Safety Report 5641169-0 (Version None)
Quarter: 2008Q1

REPORT INFORMATION
  Report Type: 
  Country: None (occurrence: None)
  Receive Date: 20080227
  Receipt Date: 20070220
  Transmission Date: 20080703
  Serious: No
  Sender: FDA-Public Use
  Company Number: A0639990A

PATIENT
  Age: 23 Year
  Sex: Female

DRUGS (1)
  1. NICORETTE (MINT) [Suspect]
     Dates: start: 20070212, end: 20070216

REACTIONS (2)
  - DYSPHAGIA [None]
  - THROAT TIGHTNESS [None]
